FAERS Safety Report 5780048-5 (Version None)
Quarter: 2008Q2

REPORT INFORMATION
  Report Type: 
  Country: None (occurrence: None)
  Receive Date: 20080620
  Receipt Date: 20080610
  Transmission Date: 20081010
  Serious: Yes (Other)
  Sender: FDA-Public Use
  Company Number: US-ROCHE-569319

PATIENT
  Age: 30 Year
  Sex: Female

DRUGS (2)
  1. CELLCEPT [Suspect]
     Route: 065
     Dates: start: 20070601
  2. PREDNISONE TAB [Concomitant]
     Dosage: OCCASIONAL

REACTIONS (1)
  - FIBROCYSTIC BREAST DISEASE [None]
